FAERS Safety Report 24074968 (Version 2)
Quarter: 2025Q2

REPORT INFORMATION
  Report Type: Spontaneous
  Country: US (occurrence: US)
  Receive Date: 20240710
  Receipt Date: 20250605
  Transmission Date: 20250716
  Serious: No
  Sender: PIERRE FABRE MEDICAMENT
  Company Number: US-PFM-2023-06866

PATIENT
  Age: 0 Year
  Sex: Female
  Weight: 9.07 kg

DRUGS (4)
  1. HEMANGEOL [Suspect]
     Active Substance: PROPRANOLOL HYDROCHLORIDE
     Indication: Haemangioma
     Dosage: 0.5 ML, BID (2/DAY)
     Dates: start: 20231127
  2. HEMANGEOL [Suspect]
     Active Substance: PROPRANOLOL HYDROCHLORIDE
     Dosage: 1.1 ML, BID (2/DAY)
  3. HEMANGEOL [Suspect]
     Active Substance: PROPRANOLOL HYDROCHLORIDE
  4. HEMANGEOL [Suspect]
     Active Substance: PROPRANOLOL HYDROCHLORIDE

REACTIONS (7)
  - Infantile spitting up [Unknown]
  - Illness [Unknown]
  - COVID-19 [Unknown]
  - Influenza [Unknown]
  - Haemangioma [Unknown]
  - Condition aggravated [Unknown]
  - Somnolence [Unknown]

NARRATIVE: CASE EVENT DATE: 20240501
